FAERS Safety Report 7900250-3 (Version None)
Quarter: 2011Q4

REPORT INFORMATION
  Report Type: 
  Country: None (occurrence: None)
  Receive Date: 20111108
  Receipt Date: 20111031
  Transmission Date: 20120403
  Serious: Yes (Hospitalization)
  Sender: FDA-Public Use
  Company Number: JP-JNJFOC-20110507374

PATIENT
  Sex: Female

DRUGS (21)
  1. DIAZEPAM [Concomitant]
     Route: 048
     Dates: start: 20110218
  2. LANSOPRAZOLE [Concomitant]
     Route: 048
     Dates: start: 20110218
  3. LEVOFLOXACIN [Suspect]
     Indication: URINARY TRACT INFECTION
     Route: 048
     Dates: start: 20110422, end: 20110425
  4. BASEN [Concomitant]
     Route: 048
     Dates: start: 20110401, end: 20110428
  5. PURSENNID [Concomitant]
     Route: 048
     Dates: start: 20110218
  6. CINAL [Concomitant]
     Route: 065
  7. WARFARIN SODIUM [Concomitant]
     Route: 065
     Dates: start: 20110218, end: 20110421
  8. MUCODYNE [Concomitant]
     Route: 048
     Dates: start: 20110218, end: 20110428
  9. LEVOTHYROXINE SODIUM [Concomitant]
     Route: 048
     Dates: start: 20110218
  10. LANTUS [Concomitant]
     Route: 058
     Dates: start: 20110316
  11. LEVOFLOXACIN [Suspect]
     Route: 048
     Dates: start: 20110407, end: 20110418
  12. LOXONIN [Concomitant]
     Route: 048
     Dates: start: 20110218, end: 20110422
  13. LEVOFLOXACIN [Suspect]
     Route: 048
     Dates: start: 20110420, end: 20110420
  14. HOKUNALIN TAPE [Concomitant]
     Route: 065
     Dates: start: 20110218
  15. LEVOFLOXACIN [Suspect]
     Indication: ABSCESS
     Route: 048
     Dates: start: 20110422, end: 20110425
  16. LEVOFLOXACIN [Suspect]
     Route: 048
     Dates: start: 20110407, end: 20110418
  17. NITRODERM [Concomitant]
     Route: 048
     Dates: start: 20110218
  18. WARFARIN SODIUM [Concomitant]
     Route: 065
     Dates: start: 20110422, end: 20110101
  19. ASPIRIN [Concomitant]
     Route: 065
  20. LEVOFLOXACIN [Suspect]
     Route: 048
     Dates: start: 20110420, end: 20110420
  21. MAGNESIUM SULFATE [Concomitant]
     Route: 048
     Dates: start: 20110218

REACTIONS (1)
  - HENOCH-SCHONLEIN PURPURA [None]
